FAERS Safety Report 7648152-4 (Version None)
Quarter: 2011Q3

REPORT INFORMATION
  Report Type: 
  Country: None (occurrence: None)
  Receive Date: 20110801
  Receipt Date: 20110727
  Transmission Date: 20111222
  Serious: Yes (Other)
  Sender: FDA-Public Use
  Company Number: US-PFIZER INC-2011165347

PATIENT
  Sex: Female
  Weight: 125 kg

DRUGS (1)
  1. NAVANE [Suspect]
     Indication: BIPOLAR DISORDER
     Dosage: 5 MG, DAILY
     Route: 048
     Dates: start: 19981101, end: 20070401

REACTIONS (31)
  - VISION BLURRED [None]
  - NASAL CONGESTION [None]
  - CHILLS [None]
  - ABDOMINAL PAIN UPPER [None]
  - DYSPNOEA [None]
  - MUSCLE TWITCHING [None]
  - SOMNOLENCE [None]
  - TREMOR [None]
  - CHEST PAIN [None]
  - PRURITUS [None]
  - MENSTRUAL DISORDER [None]
  - INCREASED APPETITE [None]
  - WEIGHT INCREASED [None]
  - MOOD ALTERED [None]
  - AGITATION [None]
  - CONSTIPATION [None]
  - SUICIDAL IDEATION [None]
  - DIZZINESS [None]
  - ANXIETY [None]
  - PAIN IN EXTREMITY [None]
  - ASTHENIA [None]
  - SALIVARY HYPERSECRETION [None]
  - DYSPHAGIA [None]
  - ABNORMAL BEHAVIOUR [None]
  - HYPERHIDROSIS [None]
  - NAUSEA [None]
  - DYSURIA [None]
  - CONFUSIONAL STATE [None]
  - MUSCLE RIGIDITY [None]
  - HEART RATE IRREGULAR [None]
  - DISTURBANCE IN ATTENTION [None]
